FAERS Safety Report 24229476 (Version 3)
Quarter: 2024Q3

REPORT INFORMATION
  Report Type: Spontaneous
  Country: HU (occurrence: HU)
  Receive Date: 20240820
  Receipt Date: 20240909
  Transmission Date: 20241017
  Serious: Yes (Death, Other)
  Sender: BAUSCH AND LOMB
  Company Number: HU-BIOVITRUM-2024-HU-010907

PATIENT
  Age: 4 Month
  Sex: Male
  Weight: 4.3 kg

DRUGS (26)
  1. DEXAMETHASONE [Suspect]
     Active Substance: DEXAMETHASONE
     Indication: Haemophagocytic lymphohistiocytosis
     Dosage: DOSE: 2.5 MG UNIT: 4 MG/ML FREQUENCY: 1 TIMES
     Route: 042
     Dates: start: 20240808, end: 20240811
  2. ANAKINRA [Suspect]
     Active Substance: ANAKINRA
     Indication: Familial haemophagocytic lymphohistiocytosis
     Dosage: 2 MG/KG BOLUS FOLLOWED BY 10 MG/KG/DAY CONTINUOUS INFUSION UNIT: 100 MG/0.67 ML FREQUENCY: CONT
     Route: 042
     Dates: start: 20240808, end: 20240812
  3. MEROPENEM [Concomitant]
     Active Substance: MEROPENEM
     Indication: Infection
     Dosage: DOSE: 150 MG UNIT: 500 MG FREQUENCY: 2 TIMES
     Route: 042
     Dates: start: 20240807, end: 20240811
  4. VANCOMYCIN [Concomitant]
     Active Substance: VANCOMYCIN
     Indication: Infection
     Dosage: DOSE: 40 MG UNIT: 500 MG FREQUENCY: 2 TIMES
     Route: 042
     Dates: start: 20240807, end: 20240811
  5. FENTANYL [Concomitant]
     Active Substance: FENTANYL\FENTANYL CITRATE
     Indication: Pain
     Dosage: DOSE: 1 MCG/KG/HOUR UNIT: 500 MCG/10 ML FREQUENCY: CONTINUOUS
     Route: 042
     Dates: start: 20240807, end: 20240811
  6. FENTANYL [Concomitant]
     Active Substance: FENTANYL\FENTANYL CITRATE
     Indication: Sedation
  7. ETOPOSIDE [Concomitant]
     Active Substance: ETOPOSIDE
     Indication: Haemophagocytic lymphohistiocytosis
     Dosage: DOSE: 22 MG UNIT: 200 MG/10 ML FREQUENCY: 1 TIMES
     Route: 042
     Dates: start: 20240810, end: 20240810
  8. MIDAZOLAM [Concomitant]
     Active Substance: MIDAZOLAM
     Indication: Sedation
     Dosage: DOSE: 0.1 MG/KG/HOUR UNIT: 50 MG/10 ML FREQUENCY: CONTINUOUS
     Route: 042
     Dates: start: 20240807, end: 20240811
  9. DOBUTAMINE [Concomitant]
     Active Substance: DOBUTAMINE HYDROCHLORIDE
     Indication: Vasoconstriction
     Dosage: DOSE: 6 MCG/KG/HOUR UNIT: 250 MG/50 ML FREQUENCY: CONTINUOUS
     Route: 042
     Dates: start: 20240809, end: 20240811
  10. SODIUM BICARBONATE [Concomitant]
     Active Substance: SODIUM BICARBONATE
     Indication: Metabolic acidosis
     Dosage: DOSE: 10 ML/H UNIT: 4.2% FREQUENCY: CONTINUOUS
     Route: 042
     Dates: start: 20240807, end: 20240811
  11. PROTHROMBIN COMPLEX CONCENTRATE [Concomitant]
     Active Substance: COAGULATION FACTOR IX HUMAN\COAGULATION FACTOR VII HUMAN\COAGULATION FACTOR X HUMAN\PROTEIN C\PROTEI
     Indication: Haemorrhage
     Dosage: DOSE: 300 U UNIT: 600 U FREQUENCY: 1 TIMES
     Route: 042
     Dates: start: 20240807, end: 20240808
  12. PROTHROMBIN COMPLEX CONCENTRATE [Concomitant]
     Active Substance: COAGULATION FACTOR IX HUMAN\COAGULATION FACTOR VII HUMAN\COAGULATION FACTOR X HUMAN\PROTEIN C\PROTEI
     Indication: Supplementation therapy
  13. NOREPINEPHRINE [Concomitant]
     Active Substance: NOREPINEPHRINE\NOREPINEPHRINE BITARTRATE
     Indication: Hypotension
     Dosage: DOSE: 0.5 MCG/KG/HOUR UNIT: 1 MG/ML FREQUENCY: CONTINUOUS
     Route: 042
     Dates: start: 20240807, end: 20240809
  14. NOREPINEPHRINE [Concomitant]
     Active Substance: NOREPINEPHRINE\NOREPINEPHRINE BITARTRATE
     Route: 042
     Dates: start: 20240811
  15. ANTITHROMBIN III HUMAN [Concomitant]
     Active Substance: ANTITHROMBIN III HUMAN
     Indication: Supplementation therapy
     Dosage: DOSE: 300 U UNIT: 500 U FREQUENCY: 1 TIMES
     Route: 042
     Dates: start: 20240808, end: 20240808
  16. MANNITOL [Concomitant]
     Active Substance: MANNITOL
     Indication: Reduction of increased intracranial pressure
     Dosage: DOSE: 2 MG UNIT: 20 % FREQUENCY: 4 TIMES
     Route: 042
     Dates: start: 20240810, end: 20240811
  17. LEVETIRACETAM [Concomitant]
     Active Substance: LEVETIRACETAM
     Indication: Seizure
     Dosage: DOSE: 130 MG UNIT: 500 MG/5 ML FREQUENCY: 2 TIMES
     Route: 042
     Dates: start: 20240810, end: 20240811
  18. FIBRINOGEN HUMAN [Concomitant]
     Active Substance: FIBRINOGEN HUMAN
     Indication: Haemorrhage
     Dosage: DOSE: 300 MG UNIT: 1 G FREQUENCY: 1-3 TIMES
     Route: 042
     Dates: start: 20240807, end: 20240808
  19. FIBRINOGEN HUMAN [Concomitant]
     Active Substance: FIBRINOGEN HUMAN
     Indication: Supplementation therapy
  20. HUMAN IMMUNOGLOBULIN G [Concomitant]
     Active Substance: HUMAN IMMUNOGLOBULIN G
     Indication: Haemophagocytic lymphohistiocytosis
     Dosage: DOSE: 5 G UNIT: 5 G/100 ML FREQUENCY: 1 TIMES
     Route: 042
     Dates: start: 20240808, end: 20240808
  21. HYDROCORTISONE [Concomitant]
     Active Substance: HYDROCORTISONE\HYDROCORTISONE ACETATE
     Indication: Hypotension
     Dosage: DOSE: 4-1 MG UNIT: 100 MG/2 ML FREQUENCY: 4 TIMES
     Route: 042
     Dates: start: 20240807, end: 20240811
  22. HYDROCORTISONE [Concomitant]
     Active Substance: HYDROCORTISONE\HYDROCORTISONE ACETATE
     Indication: Supplementation therapy
  23. PANTOPRAZOLE [Concomitant]
     Active Substance: PANTOPRAZOLE
     Indication: Stress ulcer
     Dosage: DOSE: 5 MG UNIT: 40 MG FREQUENCY: 2 TIMES
     Route: 042
     Dates: start: 20240807, end: 20240811
  24. ARGIPRESSIN [Concomitant]
     Active Substance: ARGIPRESSIN
     Indication: Hypotension
     Dosage: DOSE: 0.024 U/KG/H UNIT: 40 U/2 ML FREQUENCY: CONTINUOUS
     Route: 042
     Dates: start: 20240807, end: 20240808
  25. ARGIPRESSIN [Concomitant]
     Active Substance: ARGIPRESSIN
     Route: 042
     Dates: start: 20240811
  26. FLUCONAZOLE [Concomitant]
     Active Substance: FLUCONAZOLE
     Indication: Infection
     Dosage: DOSE: 25 MG UNIT: 200 MG/100 ML FREQUENCY: 1 TIMES
     Route: 042
     Dates: start: 20240809, end: 20240811

REACTIONS (3)
  - Multiple organ dysfunction syndrome [Fatal]
  - Brain death [Fatal]
  - Intentional product misuse [Recovered/Resolved]

NARRATIVE: CASE EVENT DATE: 20240808
